FAERS Safety Report 6558017-7 (Version None)
Quarter: 2010Q1

REPORT INFORMATION
  Report Type: 
  Country: None (occurrence: None)
  Receive Date: 20100129
  Receipt Date: 20100119
  Transmission Date: 20100710
  Serious: Yes (Other)
  Sender: FDA-Public Use
  Company Number: US-ELI_LILLY_AND_COMPANY-US201001004170

PATIENT
  Age: 43 Year
  Sex: Female

DRUGS (6)
  1. STRATTERA [Suspect]
     Indication: ATTENTION DEFICIT/HYPERACTIVITY DISORDER
     Dosage: 80 MG, DAILY (1/D)
     Route: 065
  2. STRATTERA [Suspect]
     Dosage: 60 MG, DAILY (1/D)
     Route: 065
  3. STRATTERA [Suspect]
     Dosage: 40 MG, DAILY (1/D)
     Route: 065
  4. TRAMADOL [Concomitant]
     Dosage: UNK, UNKNOWN
     Route: 065
  5. PHENERGAN HCL [Concomitant]
     Dosage: UNK, UNKNOWN
     Route: 065
  6. HYDROCODONE [Concomitant]
     Dosage: UNK, UNKNOWN
     Route: 065

REACTIONS (5)
  - DRUG WITHDRAWAL SYNDROME [None]
  - ENDODONTIC PROCEDURE [None]
  - INFLUENZA LIKE ILLNESS [None]
  - MALAISE [None]
  - SPINAL DISORDER [None]
